FAERS Safety Report 4738424-5 (Version None)
Quarter: 2005Q3

REPORT INFORMATION
  Report Type: 
  Country: None (occurrence: None)
  Receive Date: 20050803
  Receipt Date: 20050725
  Transmission Date: 20060218
  Serious: Yes (Disabling)
  Sender: FDA-Public Use
  Company Number: 2005106172

PATIENT

DRUGS (4)
  1. SORTIS (ATORVASTATIN) [Suspect]
     Indication: HYPERCHOLESTEROLAEMIA
     Dosage: ORAL
     Route: 048
  2. ARTICAINE HYDROCHLORIDE [Suspect]
     Dosage: 68 MG
     Dates: start: 20030101, end: 20030101
  3. SELIPRAN (PRAVASTATIN SODIUM) [Suspect]
     Indication: HYPERCHOLESTEROLAEMIA
  4. ADRENALINE [Suspect]
     Dosage: 68 MG

REACTIONS (3)
  - AGEUSIA [None]
  - DENTAL TREATMENT [None]
  - POST PROCEDURAL COMPLICATION [None]
